FAERS Safety Report 17829702 (Version 1)
Quarter: 2020Q2

REPORT INFORMATION
  Report Type: Spontaneous
  Country: CA (occurrence: CA)
  Receive Date: 20200527
  Receipt Date: 20200527
  Transmission Date: 20200714
  Serious: Yes (Other)
  Sender: FDA-Public Use
  Company Number: CA-PFIZER INC-2020206597

PATIENT
  Age: 52 Year
  Sex: Female
  Weight: 71 kg

DRUGS (18)
  1. OXAZEPAM. [Concomitant]
     Active Substance: OXAZEPAM
     Route: 065
  2. STATEX [MORPHINE SULFATE] [Concomitant]
     Active Substance: MORPHINE SULFATE
  3. GABAPENTIN. [Concomitant]
     Active Substance: GABAPENTIN
  4. MACROGOL [Concomitant]
     Active Substance: POLYETHYLENE GLYCOLS
     Route: 048
  5. TEMAZEPAM. [Concomitant]
     Active Substance: TEMAZEPAM
     Route: 065
  6. TRASTUZUMAB. [Suspect]
     Active Substance: TRASTUZUMAB
     Indication: HER2 POSITIVE BREAST CANCER
     Dosage: UNK, CYCLIC (1 EVERY 21 DAYS)
     Route: 042
  7. ATARAX [Concomitant]
     Active Substance: HYDROXYZINE HYDROCHLORIDE
     Route: 065
  8. VENTOLIN [Concomitant]
     Active Substance: ALBUTEROL SULFATE
     Route: 065
  9. SODIUM CHLORIDE. [Concomitant]
     Active Substance: SODIUM CHLORIDE
  10. AMITRIPTYLINE [Concomitant]
     Active Substance: AMITRIPTYLINE
     Route: 065
  11. NITROFURANTOIN. [Concomitant]
     Active Substance: NITROFURANTOIN
     Route: 065
  12. CELECOXIB. [Concomitant]
     Active Substance: CELECOXIB
  13. PANTOPRAZOLE [Concomitant]
     Active Substance: PANTOPRAZOLE
  14. TOVIAZ [Concomitant]
     Active Substance: FESOTERODINE FUMARATE
     Route: 065
  15. ALVESCO [Concomitant]
     Active Substance: CICLESONIDE
     Route: 065
  16. IRON SULPHATE [Concomitant]
     Active Substance: FERROUS SULFATE ANHYDROUS
  17. MAGNESIUM OXIDE. [Concomitant]
     Active Substance: MAGNESIUM OXIDE
     Route: 065
  18. MYRBETRIQ [Concomitant]
     Active Substance: MIRABEGRON
     Route: 065

REACTIONS (1)
  - Erythema [Recovered/Resolved]
